FAERS Safety Report 12587201 (Version 1)
Quarter: 2016Q3

REPORT INFORMATION
  Report Type: Report from Study
  Country: US (occurrence: US)
  Receive Date: 20160725
  Receipt Date: 20160725
  Transmission Date: 20161109
  Serious: No
  Sender: FDA-Public Use
  Company Number: US-AMGEN-USASL2016092024

PATIENT
  Age: 60 Year
  Sex: Male

DRUGS (1)
  1. ENBREL [Suspect]
     Active Substance: ETANERCEPT
     Indication: PRODUCT USED FOR UNKNOWN INDICATION
     Dosage: 50 MG, UNK
     Route: 065
     Dates: start: 20120201

REACTIONS (5)
  - Attention deficit/hyperactivity disorder [Unknown]
  - Obsessive-compulsive disorder [Unknown]
  - Ill-defined disorder [Unknown]
  - Post-traumatic stress disorder [Unknown]
  - Memory impairment [Not Recovered/Not Resolved]
